FAERS Safety Report 11800208 (Version 1)
Quarter: 2015Q4

REPORT INFORMATION
  Report Type: Report from Study
  Country: US (occurrence: US)
  Receive Date: 20151203
  Receipt Date: 20151203
  Transmission Date: 20160305
  Serious: Yes (Other)
  Sender: FDA-Public Use
  Company Number: US-AMGEN-USASL2015127884

PATIENT
  Age: 60 Year
  Sex: Male

DRUGS (2)
  1. DEXAMETHASONE. [Concomitant]
     Active Substance: DEXAMETHASONE
     Dosage: 4 MG, UNK
  2. KYPROLIS [Suspect]
     Active Substance: CARFILZOMIB
     Indication: PLASMA CELL MYELOMA
     Dosage: 20 MG/M2, UNK
     Route: 065
     Dates: start: 2015

REACTIONS (9)
  - Erythema [Unknown]
  - Infusion related reaction [Unknown]
  - Respiratory distress [Recovering/Resolving]
  - Flushing [Recovering/Resolving]
  - Abdominal pain upper [Recovering/Resolving]
  - Infusion site pain [Unknown]
  - Chest pain [Unknown]
  - Hypersensitivity [Unknown]
  - Dyspnoea [Recovering/Resolving]

NARRATIVE: CASE EVENT DATE: 2015
